FAERS Safety Report 6384613-6 (Version None)
Quarter: 2009Q4

REPORT INFORMATION
  Report Type: 
  Country: None (occurrence: None)
  Receive Date: 20091001
  Receipt Date: 20090921
  Transmission Date: 20100525
  Serious: Yes (Other)
  Sender: FDA-Public Use
  Company Number: PHHY2009IT41032

PATIENT
  Sex: Female

DRUGS (1)
  1. VOLTFAST [Suspect]
     Indication: NECK PAIN
     Dosage: 1 DF, ONCE/SINGLE
     Route: 048
     Dates: start: 20090806, end: 20090806

REACTIONS (1)
  - DERMATITIS BULLOUS [None]
